FAERS Safety Report 8506618-9 (Version None)
Quarter: 2012Q3

REPORT INFORMATION
  Report Type: 
  Country: None (occurrence: None)
  Receive Date: 20120706
  Receipt Date: 20120706
  Transmission Date: 20120928
  Serious: Yes (Hospitalization)
  Sender: FDA-Public Use
  Company Number: None

PATIENT
  Sex: Female

DRUGS (3)
  1. RIBAVIRIN [Suspect]
     Dosage: ?50 M, BID, ORAL  ?MG TID ORAL
     Route: 048
     Dates: start: 20120102
  2. RIBAVIRIN [Suspect]
  3. PEGASYS [Suspect]
     Indication: HEPATITIS C
     Dosage: 80 MCG, WEEKLY, SQ
     Dates: start: 20120607

REACTIONS (5)
  - INFECTION [None]
  - URINARY TRACT INFECTION [None]
  - DEHYDRATION [None]
  - PHOTOSENSITIVITY REACTION [None]
  - FATIGUE [None]
